FAERS Safety Report 9375511 (Version 1)
Quarter: 2013Q2

REPORT INFORMATION
  Report Type: Report from Study
  Country: US (occurrence: US)
  Receive Date: 20130628
  Receipt Date: 20130628
  Transmission Date: 20140414
  Serious: Yes (Death, Life-Threatening, Hospitalization, Other)
  Sender: FDA-Public Use
  Company Number: US-BRISTOL-MYERS SQUIBB COMPANY-17227000

PATIENT
  Age: 35 Year
  Sex: Female
  Weight: 56 kg

DRUGS (9)
  1. HYDREA [Suspect]
     Indication: WHITE BLOOD CELL COUNT INCREASED
     Dosage: UID/QD
     Route: 048
     Dates: start: 20121107, end: 20121113
  2. VALTREX [Concomitant]
  3. LORAZEPAM [Concomitant]
  4. DILAUDID [Concomitant]
  5. POSACONAZOLE [Concomitant]
  6. AVALOX [Concomitant]
  7. LOESTRIN [Concomitant]
     Dosage: TABS
  8. ALLOPURINOL [Concomitant]
  9. PANTOPRAZOLE [Concomitant]

REACTIONS (9)
  - Multi-organ failure [Fatal]
  - Venoocclusive disease [Fatal]
  - Septic shock [Recovered/Resolved]
  - Febrile neutropenia [Recovered/Resolved]
  - Pneumonia respiratory syncytial viral [Recovered/Resolved]
  - Escherichia bacteraemia [Unknown]
  - Nausea [Recovering/Resolving]
  - Vomiting [Recovering/Resolving]
  - Bone marrow transplant [Unknown]
